FAERS Safety Report 9903030 (Version 3)
Quarter: 2014Q1

REPORT INFORMATION
  Report Type: Report from Study
  Country: CA (occurrence: CA)
  Receive Date: 20140217
  Receipt Date: 20140325
  Transmission Date: 20141002
  Serious: Yes (Other)
  Sender: FDA-Public Use
  Company Number: PHHY2012CA009919

PATIENT
  Age: 73 Year
  Sex: Female

DRUGS (5)
  1. ACLASTA [Suspect]
     Indication: OSTEOPOROSIS
     Dosage: UNK UKN, YEARLY
     Route: 042
     Dates: start: 20091202
  2. ACLASTA [Suspect]
     Dosage: UNK UKN, YEARLY
     Route: 042
     Dates: start: 20101130
  3. ACLASTA [Suspect]
     Dosage: UNK UKN, YEARLY
     Route: 042
     Dates: start: 20120113
  4. ACLASTA [Suspect]
     Dosage: UNK UKN, YEARLY
     Route: 042
     Dates: start: 20130212
  5. ACLASTA [Suspect]
     Dosage: UNK UKN, YEARLY
     Route: 042
     Dates: start: 20140212

REACTIONS (3)
  - Heart rate decreased [Unknown]
  - Blood pressure increased [Unknown]
  - Anxiety [Recovered/Resolved]
